FAERS Safety Report 7474485-0 (Version None)
Quarter: 2011Q2

REPORT INFORMATION
  Report Type: 
  Country: None (occurrence: None)
  Receive Date: 20110512
  Receipt Date: 20110120
  Transmission Date: 20111010
  Serious: No
  Sender: FDA-Public Use
  Company Number: US-BAYER-2011-007987

PATIENT
  Age: 48 Year
  Sex: Female

DRUGS (2)
  1. NEXIUM [Concomitant]
  2. AVELOX [Suspect]
     Indication: LUNG INFECTION
     Dosage: 400 MG, QD
     Route: 048
     Dates: start: 20110119, end: 20110120

REACTIONS (5)
  - NAUSEA [None]
  - TACHYARRHYTHMIA [None]
  - CHEST PAIN [None]
  - HYPOAESTHESIA [None]
  - DIZZINESS [None]
